FAERS Safety Report 8826374 (Version 1)
Quarter: 2012Q4

REPORT INFORMATION
  Report Type: 
  Country: MT (occurrence: MT)
  Receive Date: 20121008
  Receipt Date: 20121008
  Transmission Date: 20130627
  Serious: Yes (Death)
  Sender: FDA-Public Use
  Company Number: PHHY2012MT087939

PATIENT
  Age: 31 Year
  Sex: Male

DRUGS (1)
  1. LEPONEX [Suspect]
     Indication: SCHIZOPHRENIA
     Dosage: 200 mg daily dose
     Route: 048
     Dates: start: 200807

REACTIONS (2)
  - Death [Fatal]
  - Salivary hypersecretion [Unknown]
